FAERS Safety Report 21509918 (Version 1)
Quarter: 2022Q4

REPORT INFORMATION
  Report Type: Spontaneous
  Country: TR (occurrence: TR)
  Receive Date: 20221026
  Receipt Date: 20221026
  Transmission Date: 20230113
  Serious: No
  Sender: FDA-Public Use
  Company Number: TR-JAZZ-2022-TR-025471

PATIENT
  Age: 12 Year
  Sex: Female

DRUGS (4)
  1. DEFIBROTIDE [Suspect]
     Active Substance: DEFIBROTIDE (BOVINE)
     Indication: Venoocclusive liver disease
     Dosage: 25 MILLIGRAM/KILOGRAM
  2. FLUCONAZOLE [Concomitant]
     Active Substance: FLUCONAZOLE
  3. ACYCLOVIR [Concomitant]
     Active Substance: ACYCLOVIR
  4. CIPROFLOXACIN [Concomitant]
     Active Substance: CIPROFLOXACIN

REACTIONS (1)
  - Off label use [Unknown]
